FAERS Safety Report 8730471 (Version 2)
Quarter: 2012Q4

REPORT INFORMATION
  Report Type: 
  Country: DE (occurrence: DE)
  Receive Date: 20120817
  Receipt Date: 20120831
  Transmission Date: 20130627
  Serious: Yes (Hospitalization)
  Sender: FDA-Public Use
  Company Number: DE-AMGEN-DEUSP2012050663

PATIENT
  Age: 18 Year

DRUGS (9)
  1. NEULASTA [Suspect]
     Indication: CHEMOTHERAPY
     Dosage: 6 mg, UNK
     Dates: start: 20111015
  2. ADRIAMYCIN                         /00330901/ [Suspect]
     Indication: HODGKIN^S DISEASE
     Dosage: 35 mg/m2, UNK
  3. BLEOMYCIN [Suspect]
     Indication: HODGKIN^S DISEASE
     Dosage: 10 mg/m2, UNK
  4. PROCARBAZINE [Suspect]
     Indication: HODGKIN^S DISEASE
     Dosage: 100 mg/m2, UNK
  5. VINCRISTINE [Suspect]
     Indication: HODGKIN^S DISEASE
     Dosage: 1.4 mg/m2, UNK
  6. ETOPOSID [Suspect]
     Indication: HODGKIN^S DISEASE
     Dosage: 200 mg/m2, UNK
  7. CYCLOPHOSPHAMIDE [Suspect]
     Indication: HODGKIN^S DISEASE
     Dosage: 1250 mg/m2, UNK
  8. PREDNISON [Suspect]
     Indication: HODGKIN^S DISEASE
     Dosage: 40 mg/m2, UNK
  9. COTRIMOXAZOLE [Suspect]

REACTIONS (1)
  - Abdominal discomfort [Recovered/Resolved]
